FAERS Safety Report 9251940 (Version 1)
Quarter: 2013Q1

REPORT INFORMATION
  Report Type: Spontaneous
  Country: US (occurrence: None)
  Receive Date: 20130305
  Receipt Date: 20130305
  Transmission Date: 20140127
  Serious: Yes (Hospitalization)
  Sender: FDA-Public Use
  Company Number: 163-21880-12090798

PATIENT
  Age: 70 Year
  Sex: Female
  Weight: 81.65 kg

DRUGS (6)
  1. REVLIMID [Suspect]
     Indication: PLASMA CELL MYELOMA
     Dosage: 21 IN 21 D
     Route: 048
     Dates: start: 20110414
  2. ASA(ACETYLSALICYLIC ACID)(UNKNOWN) [Concomitant]
  3. DILTIAZEM(DILTIAZEM)(UNKNOWN) [Concomitant]
  4. DEXAMETHASONE(DEXAMETHASONE)(UNKNOWN) [Concomitant]
  5. VITAMIN D(ERGOCALCIFEROL)(UNKNOWN) [Concomitant]
  6. METOLAZONE(METOLAZONE)(UNKNOWN) [Concomitant]

REACTIONS (1)
  - Thrombosis [None]
